FAERS Safety Report 17580853 (Version 1)
Quarter: 2020Q1

REPORT INFORMATION
  Report Type: Spontaneous
  Country: PT (occurrence: PT)
  Receive Date: 20200325
  Receipt Date: 20200325
  Transmission Date: 20200409
  Serious: Yes (Other)
  Sender: FDA-Public Use
  Company Number: PT-FERRINGPH-2020FE01875

PATIENT
  Age: 71 Year
  Sex: Female

DRUGS (2)
  1. CRH [CORTICORELIN] [Suspect]
     Active Substance: CORTICORELIN
     Indication: ACTH STIMULATION TEST
     Dosage: UNK
     Route: 065
  2. DEXAMETHASONE. [Concomitant]
     Active Substance: DEXAMETHASONE
     Indication: DEXAMETHASONE SUPPRESSION TEST
     Dosage: UNK

REACTIONS (3)
  - Pituitary apoplexy [Unknown]
  - Hypopituitarism [Unknown]
  - Diabetes insipidus [Unknown]
